FAERS Safety Report 26006584 (Version 2)
Quarter: 2025Q4

REPORT INFORMATION
  Report Type: Spontaneous
  Country: HN (occurrence: HN)
  Receive Date: 20251106
  Receipt Date: 20251110
  Transmission Date: 20260118
  Serious: No
  Sender: PFIZER
  Company Number: HN-PFIZER INC-PV202500128648

PATIENT
  Age: 9 Year
  Sex: Male

DRUGS (3)
  1. GENOTROPIN [Suspect]
     Active Substance: SOMATROPIN
     Dosage: 0.6 MG, DAILY
  2. GENOTROPIN [Suspect]
     Active Substance: SOMATROPIN
     Dosage: 0.7 DAILY AT NIGHT
  3. GENOTROPIN [Suspect]
     Active Substance: SOMATROPIN
     Dosage: 0.7 MG DAILY AT NIGHT

REACTIONS (5)
  - Expired product administered [Unknown]
  - Device information output issue [Unknown]
  - Device difficult to use [Unknown]
  - Product communication issue [Unknown]
  - Device leakage [Unknown]
